FAERS Safety Report 7441674-0 (Version None)
Quarter: 2011Q2

REPORT INFORMATION
  Report Type: 
  Country: None (occurrence: None)
  Receive Date: 20110428
  Receipt Date: 20110324
  Transmission Date: 20111010
  Serious: No
  Sender: FDA-Public Use
  Company Number: US-KINGPHARMUSA00001-K201100368

PATIENT
  Age: 38 Year
  Sex: Female

DRUGS (1)
  1. BICILLIN C-R 900/300 [Suspect]
     Indication: SYPHILIS
     Dosage: 2400000 U, QW
     Route: 030
     Dates: start: 20110304, end: 20110318

REACTIONS (2)
  - WRONG DRUG ADMINISTERED [None]
  - NO ADVERSE EVENT [None]
